FAERS Safety Report 9882489 (Version 1)
Quarter: 2014Q1

REPORT INFORMATION
  Report Type: Spontaneous
  Country: JP (occurrence: JP)
  Receive Date: 20140207
  Receipt Date: 20140207
  Transmission Date: 20141002
  Serious: Yes (Life-Threatening, Hospitalization, Other)
  Sender: FDA-Public Use
  Company Number: JP-ACTAVIS-2014-01650

PATIENT
  Age: 59 Year
  Sex: Female

DRUGS (2)
  1. GEMCITABINE (UNKNOWN) [Suspect]
     Indication: METASTASES TO BONE
     Dosage: 1250 MG/M2 14 DAYS FOLLOWED BY 7-DAY REST PERIOD
     Route: 065
     Dates: start: 201103
  2. MEDROXYPROGESTERONE [Concomitant]
     Indication: METASTASES TO BONE
     Dosage: UNK
     Route: 065

REACTIONS (7)
  - Tumour lysis syndrome [Unknown]
  - Renal impairment [Unknown]
  - Hepatic function abnormal [Unknown]
  - Anaemia [Unknown]
  - Hypercalcaemia [Unknown]
  - Disseminated intravascular coagulation [Unknown]
  - Haemorrhage [Unknown]
